FAERS Safety Report 21700183 (Version 1)
Quarter: 2022Q4

REPORT INFORMATION
  Report Type: Report from Study
  Country: US (occurrence: US)
  Receive Date: 20221208
  Receipt Date: 20221208
  Transmission Date: 20230112
  Serious: No
  Sender: FDA-Public Use
  Company Number: US-ABBVIE-4193645

PATIENT
  Sex: Female

DRUGS (1)
  1. SKYRIZI [Suspect]
     Active Substance: RISANKIZUMAB-RZAA
     Indication: Psoriasis
     Dosage: FORM STRENGTH: 150 MG
     Route: 058
     Dates: start: 20220703

REACTIONS (8)
  - Influenza [Recovering/Resolving]
  - Hyperhidrosis [Unknown]
  - Cellulitis [Unknown]
  - Cough [Recovering/Resolving]
  - Cyst [Unknown]
  - Oropharyngeal pain [Recovering/Resolving]
  - Impaired work ability [Unknown]
  - Headache [Recovering/Resolving]

NARRATIVE: CASE EVENT DATE: 20220101
